FAERS Safety Report 9741561 (Version 1)
Quarter: 2013Q4

REPORT INFORMATION
  Report Type: Spontaneous
  Country: US (occurrence: US)
  Receive Date: 20131210
  Receipt Date: 20131210
  Transmission Date: 20140711
  Serious: No
  Sender: FDA-Public Use
  Company Number: US-009507513-1312USA002918

PATIENT
  Age: 18 Year
  Sex: Female
  Weight: 58.96 kg

DRUGS (1)
  1. NEXPLANON [Suspect]
     Indication: CONTRACEPTION
     Dosage: UNK
     Route: 059
     Dates: start: 201210

REACTIONS (5)
  - Dyspnoea [Unknown]
  - Haemorrhage [Unknown]
  - Dizziness [Unknown]
  - Asthenia [Unknown]
  - Blood pressure increased [Unknown]
